FAERS Safety Report 9637418 (Version 1)
Quarter: 2013Q4

REPORT INFORMATION
  Report Type: Spontaneous
  Country: AU (occurrence: AU)
  Receive Date: 20131022
  Receipt Date: 20131022
  Transmission Date: 20140711
  Serious: Yes (Other)
  Sender: FDA-Public Use
  Company Number: AU-ASTELLAS-2013JP011347

PATIENT
  Age: 8 Year
  Sex: Male
  Weight: 25 kg

DRUGS (8)
  1. PROGRAF [Suspect]
     Indication: PROCTITIS ULCERATIVE
     Dosage: 1 MG, BID
     Route: 061
  2. PROGRAF [Suspect]
     Indication: POUCHITIS
  3. MESALAZINE [Concomitant]
     Indication: PROCTITIS ULCERATIVE
     Route: 061
  4. MESALAZINE [Concomitant]
     Indication: POUCHITIS
  5. CORTICOSTEROID NOS [Concomitant]
     Indication: PROCTITIS ULCERATIVE
     Route: 048
  6. CORTICOSTEROID NOS [Concomitant]
     Indication: POUCHITIS
  7. CORTICOSTEROID NOS [Concomitant]
     Indication: PROCTITIS ULCERATIVE
     Route: 061
  8. CORTICOSTEROID NOS [Concomitant]
     Indication: POUCHITIS

REACTIONS (1)
  - Renal injury [Recovered/Resolved]
